FAERS Safety Report 21635077 (Version 1)
Quarter: 2022Q4

REPORT INFORMATION
  Report Type: Report from Study
  Country: US (occurrence: US)
  Receive Date: 20221123
  Receipt Date: 20221123
  Transmission Date: 20230113
  Serious: No
  Sender: FDA-Public Use
  Company Number: US-ABBVIE-22K-163-4400304-00

PATIENT
  Age: 64 Year
  Sex: Male

DRUGS (1)
  1. IMBRUVICA [Suspect]
     Active Substance: IBRUTINIB
     Indication: Lymphadenopathy
     Route: 048
     Dates: start: 202112

REACTIONS (9)
  - Blood pressure fluctuation [Unknown]
  - Insomnia [Unknown]
  - Pneumonia [Unknown]
  - Muscle spasms [Unknown]
  - Skin reaction [Unknown]
  - Joint swelling [Unknown]
  - Pain [Unknown]
  - Hyperhidrosis [Unknown]
  - Arthropod bite [Unknown]

NARRATIVE: CASE EVENT DATE: 20211201
